FAERS Safety Report 19967186 (Version 2)
Quarter: 2022Q1

REPORT INFORMATION
  Report Type: Spontaneous
  Country: DE (occurrence: DE)
  Receive Date: 20211019
  Receipt Date: 20220302
  Transmission Date: 20220423
  Serious: Yes (Hospitalization, Other)
  Sender: FDA-Public Use
  Company Number: None

PATIENT
  Sex: Male

DRUGS (6)
  1. IBUPROFEN [Suspect]
     Active Substance: IBUPROFEN
     Indication: Suicide attempt
     Dosage: 8000 MILLIGRAM, QD
     Route: 065
     Dates: start: 20210814, end: 20210814
  2. FOSTER [Suspect]
     Active Substance: BECLOMETHASONE\FORMOTEROL
     Indication: Suicide attempt
     Route: 055
     Dates: start: 20210814, end: 20210814
  3. ALBUTEROL [Suspect]
     Active Substance: ALBUTEROL
     Indication: Suicide attempt
     Route: 065
     Dates: start: 20210814, end: 20210814
  4. EBASTINE [Suspect]
     Active Substance: EBASTINE
     Indication: Suicide attempt
     Route: 065
     Dates: start: 20210814, end: 20210814
  5. PANTOPRAZOLE [Suspect]
     Active Substance: PANTOPRAZOLE
     Indication: Suicide attempt
     Route: 065
     Dates: start: 20210814, end: 20210814
  6. THEOPHYLLINE ANHYDROUS [Suspect]
     Active Substance: THEOPHYLLINE ANHYDROUS
     Indication: Suicide attempt
     Route: 065
     Dates: start: 20210814, end: 20210814

REACTIONS (5)
  - Blood glucose increased [Recovering/Resolving]
  - Electrocardiogram ST segment elevation [Recovering/Resolving]
  - Chills [Recovering/Resolving]
  - Blood pressure decreased [Recovering/Resolving]
  - Somnolence [Recovering/Resolving]

NARRATIVE: CASE EVENT DATE: 20210814
